FAERS Safety Report 4988090-9 (Version None)
Quarter: 2006Q2

REPORT INFORMATION
  Report Type: 
  Country: None (occurrence: None)
  Receive Date: 20060425
  Receipt Date: 20060413
  Transmission Date: 20061013
  Serious: Yes (Death)
  Sender: FDA-Public Use
  Company Number: 200610433GDS

PATIENT
  Age: 82 Year
  Sex: Male

DRUGS (14)
  1. CIPROFLOXACIN [Suspect]
     Indication: PNEUMONIA
     Dosage: 800 MG, TOTAL DIALY, INTRAVENOUS
     Route: 042
     Dates: start: 20040828, end: 20040831
  2. TEQUIN [Suspect]
     Indication: PNEUMONIA
     Dosage: 400 MG, QD, ORAL
     Route: 048
     Dates: start: 20040827
  3. COLACE [Concomitant]
  4. DALTEPARIN [Concomitant]
  5. GLYBURIDE [Concomitant]
  6. HEPARIN [Concomitant]
  7. IPRATROPIUM BROMIDE [Concomitant]
  8. LASIX [Concomitant]
  9. METFORMIN [Concomitant]
  10. METOPROLOL [Concomitant]
  11. METRONIDAZOLE [Concomitant]
  12. MORPHINE [Concomitant]
  13. RISPERDAL [Concomitant]
  14. VENTOLIN [Concomitant]

REACTIONS (2)
  - HYPERGLYCAEMIA [None]
  - HYPOGLYCAEMIA [None]
